FAERS Safety Report 8819695 (Version 2)
Quarter: 2012Q4

REPORT INFORMATION
  Report Type: 
  Country: US (occurrence: US)
  Receive Date: 20121001
  Receipt Date: 20121010
  Transmission Date: 20130627
  Serious: Yes (Other)
  Sender: FDA-Public Use
  Company Number: US-009507513-1209USA010725

PATIENT
  Age: 67 Year
  Sex: Male

DRUGS (2)
  1. REBETOL [Suspect]
     Indication: HEPATITIS C
     Dosage: UNK
  2. INTERFERON ALFA NOS [Suspect]
     Indication: HEPATITIS C
     Dosage: Unknown

REACTIONS (3)
  - Hypersensitivity [Unknown]
  - Urticaria [Unknown]
  - Urticaria [Unknown]
